FAERS Safety Report 15514735 (Version 1)
Quarter: 2018Q4

REPORT INFORMATION
  Report Type: Spontaneous
  Country: US (occurrence: US)
  Receive Date: 20181016
  Receipt Date: 20181016
  Transmission Date: 20190205
  Serious: Yes (Other)
  Sender: FDA-Public Use
  Company Number: US-ASTRAZENECA-2018SF32107

PATIENT
  Sex: Female
  Weight: 54.4 kg

DRUGS (3)
  1. ADVAIR HFA [Concomitant]
     Active Substance: FLUTICASONE PROPIONATE\SALMETEROL XINAFOATE
     Indication: ASTHMA
     Route: 055
  2. PROAIR HFA [Concomitant]
     Active Substance: ALBUTEROL SULFATE
     Dosage: UNKNOWN
     Route: 055
  3. SYMBICORT [Suspect]
     Active Substance: BUDESONIDE\FORMOTEROL FUMARATE DIHYDRATE
     Indication: CHRONIC OBSTRUCTIVE PULMONARY DISEASE
     Dosage: 2 PUFFS, TWO TIMES A DAY
     Route: 055

REACTIONS (12)
  - Dyspnoea [Unknown]
  - Intentional product misuse [Unknown]
  - Thyroid disorder [Unknown]
  - Panic attack [Unknown]
  - Condition aggravated [Unknown]
  - Product dose omission [Unknown]
  - Hip fracture [Unknown]
  - Lung disorder [Unknown]
  - Cardiac disorder [Unknown]
  - Headache [Unknown]
  - Angina pectoris [Unknown]
  - Therapy cessation [Unknown]
